FAERS Safety Report 5799669-9 (Version None)
Quarter: 2008Q2

REPORT INFORMATION
  Report Type: 
  Country: None (occurrence: None)
  Receive Date: 20080601
  Receipt Date: 20080130
  Transmission Date: 20081010
  Serious: No
  Sender: FDA-Public Use
  Company Number: US200801006947

PATIENT
  Age: 73 Year
  Sex: Female
  Weight: 101.6 kg

DRUGS (2)
  1. BYETTA [Suspect]
     Indication: INJECTION SITE PRURITUS
     Dosage: 10 UG, DAILY (1/D), SUBCUTANEOUS
     Route: 058
     Dates: start: 20080130
  2. EXENATIDE 10MCG PEN, DISPOSABLE DEVICE (EXENATIDE PEN (10MCG)) PEN,DIS [Concomitant]

REACTIONS (3)
  - INCORRECT DOSE ADMINISTERED [None]
  - INJECTION SITE HYPERSENSITIVITY [None]
  - INJECTION SITE PRURITUS [None]
